FAERS Safety Report 18061529 (Version 2)
Quarter: 2020Q4

REPORT INFORMATION
  Report Type: Spontaneous
  Country: MX (occurrence: MX)
  Receive Date: 20200723
  Receipt Date: 20201005
  Transmission Date: 20210113
  Serious: Yes (Death)
  Sender: FDA-Public Use
  Company Number: MX-BRISTOL-MYERS SQUIBB COMPANY-BMS-2020-057844

PATIENT
  Age: 84 Year
  Sex: Female
  Weight: 67 kg

DRUGS (1)
  1. NIVOLUMAB [Suspect]
     Active Substance: NIVOLUMAB
     Indication: MALIGNANT MELANOMA
     Dosage: 200 MILLIGRAM, Q2WK
     Route: 065
     Dates: start: 20200611, end: 20200708

REACTIONS (2)
  - Prescribed underdose [Unknown]
  - Suspected COVID-19 [Fatal]

NARRATIVE: CASE EVENT DATE: 202006
